FAERS Safety Report 8086479-5 (Version None)
Quarter: 2012Q1

REPORT INFORMATION
  Report Type: 
  Country: None (occurrence: None)
  Receive Date: 20120128
  Receipt Date: 20110505
  Transmission Date: 20120608
  Serious: Yes (Disabling, Other)
  Sender: FDA-Public Use
  Company Number: US-ABBOTT-11P-163-0723958-00

PATIENT
  Sex: Female

DRUGS (4)
  1. METHOTREXATE [Concomitant]
     Indication: RHEUMATOID ARTHRITIS
  2. HUMIRA [Suspect]
     Indication: RHEUMATOID ARTHRITIS
     Route: 058
     Dates: start: 20100125, end: 20110505
  3. TRAZODONE HCL [Concomitant]
     Indication: SLEEP DISORDER THERAPY
  4. HUMIRA [Suspect]
     Dates: start: 20090101

REACTIONS (3)
  - COUGH [None]
  - FATIGUE [None]
  - LUNG NEOPLASM MALIGNANT [None]
